FAERS Safety Report 16359959 (Version 1)
Quarter: 2019Q2

REPORT INFORMATION
  Report Type: Spontaneous
  Country: US (occurrence: US)
  Receive Date: 20190528
  Receipt Date: 20190528
  Transmission Date: 20190711
  Serious: No
  Sender: FDA-Public Use
  Company Number: US-CELGENEUS-USA-20190507837

PATIENT
  Age: 61 Year
  Sex: Female

DRUGS (1)
  1. OTEZLA [Suspect]
     Active Substance: APREMILAST
     Indication: PSORIASIS
     Dosage: 60 MILLIGRAM
     Route: 048
     Dates: start: 201810, end: 20190511

REACTIONS (8)
  - Paraesthesia [Unknown]
  - Pruritus [Unknown]
  - Hypoaesthesia [Recovering/Resolving]
  - Headache [Recovered/Resolved]
  - Muscle spasms [Unknown]
  - Peripheral swelling [Recovering/Resolving]
  - Insomnia [Unknown]
  - Abdominal discomfort [Recovered/Resolved]

NARRATIVE: CASE EVENT DATE: 201810
